FAERS Safety Report 7099722 (Version 15)
Quarter: 2012Q4

REPORT INFORMATION
  Report Type: 
  Country: BR (occurrence: BR)
  Receive Date: 20090828
  Receipt Date: 20121010
  Transmission Date: 20130627
  Serious: Yes (Life-Threatening, Other)
  Sender: FDA-Public Use
  Company Number: PHHY2009BR35649

PATIENT
  Sex: Female
  Weight: 59 kg

DRUGS (8)
  1. SANDOSTATIN LAR [Suspect]
     Indication: ACROMEGALY
     Dosage: 20 mg, once in a month
     Dates: start: 200810, end: 200905
  2. SANDOSTATIN LAR [Suspect]
     Indication: ADENOMA BENIGN
     Dosage: 20 mg, once in a month
     Dates: end: 20091014
  3. SANDOSTATIN LAR [Suspect]
     Dosage: 20 mg, once in a month
     Dates: start: 20120706
  4. ARADOIS [Concomitant]
     Indication: HYPERTENSION
     Dosage: 50 mg, BID
     Route: 048
  5. ANTIDEPRESSANTS [Concomitant]
  6. BEZAFIBRATE [Concomitant]
     Indication: BLOOD CHOLESTEROL
     Dosage: 01 DF, UNK
  7. LOSARTAN [Concomitant]
     Indication: BLOOD PRESSURE INCREASED
     Dosage: 1 DF, daily
     Route: 048
  8. HYDROCHLOROTHIAZIDE [Concomitant]
     Indication: BLOOD PRESSURE INCREASED
     Dosage: 1 DF, daily
     Route: 048

REACTIONS (51)
  - Feeling abnormal [Unknown]
  - Endometriosis [Not Recovered/Not Resolved]
  - Depression [Not Recovered/Not Resolved]
  - Formication [Unknown]
  - Malaise [Not Recovered/Not Resolved]
  - Stress [Not Recovered/Not Resolved]
  - Anaemia [Not Recovered/Not Resolved]
  - Lactose intolerance [Not Recovered/Not Resolved]
  - Haemorrhage [Recovering/Resolving]
  - Nervousness [Not Recovered/Not Resolved]
  - Emotional distress [Not Recovered/Not Resolved]
  - Tremor [Recovered/Resolved]
  - Blood triglycerides increased [Recovering/Resolving]
  - Feelings of worthlessness [Recovering/Resolving]
  - Acromegaly [Not Recovered/Not Resolved]
  - Blood growth hormone increased [Unknown]
  - Oedema peripheral [Unknown]
  - Swelling face [Unknown]
  - Eye swelling [Unknown]
  - Pain in extremity [Unknown]
  - Pain [Unknown]
  - Insulin-like growth factor increased [Recovering/Resolving]
  - Oedema [Recovering/Resolving]
  - Weight increased [Recovering/Resolving]
  - Hair disorder [Not Recovered/Not Resolved]
  - Dry skin [Unknown]
  - Dysphonia [Unknown]
  - Alopecia [Not Recovered/Not Resolved]
  - Fatigue [Recovering/Resolving]
  - Abdominal discomfort [Recovering/Resolving]
  - Abdominal distension [Recovering/Resolving]
  - Decreased appetite [Recovering/Resolving]
  - Influenza [Recovered/Resolved]
  - Pharyngitis [Recovered/Resolved]
  - Oropharyngeal pain [Recovered/Resolved]
  - Blood prolactin abnormal [Recovering/Resolving]
  - Back pain [Unknown]
  - Anxiety [Not Recovered/Not Resolved]
  - Hormone level abnormal [Unknown]
  - Irritability [Unknown]
  - Wrong technique in drug usage process [Unknown]
  - Product physical issue [Unknown]
  - Blood cholesterol decreased [Recovering/Resolving]
  - Dizziness [Unknown]
  - Diarrhoea [Unknown]
  - Blood glucose abnormal [Recovering/Resolving]
  - Abdominal pain [Not Recovered/Not Resolved]
  - Injection site pain [Recovered/Resolved]
  - Feeling cold [Not Recovered/Not Resolved]
  - Swelling [Not Recovered/Not Resolved]
  - Drug ineffective [Unknown]
